FAERS Safety Report 19578775 (Version 1)
Quarter: 2021Q3

REPORT INFORMATION
  Report Type: Report from Study
  Country: SE (occurrence: SE)
  Receive Date: 20210719
  Receipt Date: 20210719
  Transmission Date: 20211014
  Serious: Yes (Hospitalization, Other)
  Sender: FDA-Public Use
  Company Number: SE-TAKEDA-2021TUS043120

PATIENT
  Age: 67 Year
  Sex: Female

DRUGS (8)
  1. RESONIUM [Concomitant]
     Active Substance: SODIUM POLYSTYRENE SULFONATE
     Indication: HYPERKALAEMIA
     Dosage: 7.50 GRAM, QD
     Route: 048
     Dates: start: 20200928
  2. TEDUGLUTIDE [Suspect]
     Active Substance: TEDUGLUTIDE
     Indication: PRODUCT USED FOR UNKNOWN INDICATION
     Dosage: 1.900 MILLIGRAM(0.0500 MG/KG), QD
     Route: 065
     Dates: start: 20141216
  3. TEDUGLUTIDE [Suspect]
     Active Substance: TEDUGLUTIDE
     Indication: PRODUCT USED FOR UNKNOWN INDICATION
     Dosage: 1.900 MILLIGRAM(0.0500 MG/KG), QD
     Route: 065
     Dates: start: 20141216
  4. INNOHEP [Concomitant]
     Active Substance: TINZAPARIN SODIUM
     Indication: THROMBOSIS
     Dosage: 12000.00 INTERNATIONAL UNIT, QD
     Route: 058
     Dates: start: 20201110
  5. XIFAXAN [Concomitant]
     Active Substance: RIFAXIMIN
     Indication: GASTROINTESTINAL BACTERIAL OVERGROWTH
     Dosage: 550.00 MILLIGRAM, BID
     Route: 048
     Dates: start: 20210129
  6. TEDUGLUTIDE [Suspect]
     Active Substance: TEDUGLUTIDE
     Indication: PRODUCT USED FOR UNKNOWN INDICATION
     Dosage: 1.900 MILLIGRAM(0.0500 MG/KG), QD
     Route: 065
     Dates: start: 20141216
  7. INCRUSE ELLIPTA [Concomitant]
     Active Substance: UMECLIDINIUM BROMIDE
     Indication: CHRONIC OBSTRUCTIVE PULMONARY DISEASE
     Dosage: 1 PUFFS, QD
     Route: 048
     Dates: start: 20210209
  8. TEDUGLUTIDE [Suspect]
     Active Substance: TEDUGLUTIDE
     Indication: PRODUCT USED FOR UNKNOWN INDICATION
     Dosage: 1.900 MILLIGRAM(0.0500 MG/KG), QD
     Route: 065
     Dates: start: 20141216

REACTIONS (1)
  - Acute kidney injury [Recovered/Resolved]

NARRATIVE: CASE EVENT DATE: 20210119
